FAERS Safety Report 5475121-5 (Version None)
Quarter: 2007Q4

REPORT INFORMATION
  Report Type: 
  Country: None (occurrence: None)
  Receive Date: 20071002
  Receipt Date: 20071001
  Transmission Date: 20080405
  Serious: Yes (Hospitalization)
  Sender: FDA-Public Use
  Company Number: US-BOEHRINGER INGELHEIM PHARMACEUTICALS, INC.-2007-BP-09644BP

PATIENT
  Sex: Female

DRUGS (3)
  1. SPIRIVA [Suspect]
     Indication: CHRONIC OBSTRUCTIVE PULMONARY DISEASE
     Route: 055
  2. ADVAIR DISKUS 100/50 [Concomitant]
  3. THEOPHYLLINE [Concomitant]

REACTIONS (4)
  - COLLAPSE OF LUNG [None]
  - HYPOXIA [None]
  - INCREASED VISCOSITY OF BRONCHIAL SECRETION [None]
  - PRODUCTIVE COUGH [None]
